FAERS Safety Report 9284940 (Version 2)
Quarter: 2013Q2

REPORT INFORMATION
  Report Type: Spontaneous
  Country: SI (occurrence: SI)
  Receive Date: 20130513
  Receipt Date: 20130528
  Transmission Date: 20140414
  Serious: Yes (Life-Threatening, Hospitalization, Other)
  Sender: FDA-Public Use
  Company Number: SI-009507513-1305SVN004470

PATIENT
  Age: 24 Year
  Sex: Female

DRUGS (1)
  1. NUVARING [Suspect]
     Dosage: UNK
     Route: 067
     Dates: start: 20120529, end: 20130327

REACTIONS (4)
  - Venous thrombosis limb [Recovering/Resolving]
  - Limb injury [Unknown]
  - Limb operation [Unknown]
  - Arthroscopy [Unknown]
